FAERS Safety Report 19153771 (Version 1)
Quarter: 2021Q2

REPORT INFORMATION
  Report Type: Spontaneous
  Country: US (occurrence: US)
  Receive Date: 20210419
  Receipt Date: 20210419
  Transmission Date: 20210717
  Serious: Yes (Life-Threatening)
  Sender: FDA-Public Use
  Company Number: US-FRESENIUS KABI-FK202103881

PATIENT
  Age: 78 Year
  Sex: Female

DRUGS (1)
  1. LIDOCAINE/EPINEPHRINE (MANUFACTURER UNKNOWN) [Suspect]
     Active Substance: EPINEPHRINE BITARTRATE\LIDOCAINE HYDROCHLORIDE
     Indication: PRODUCT USED FOR UNKNOWN INDICATION
     Dosage: LIDOCAINE 1 PERCENT WITH EPINEPHRINE 1:100000
     Route: 065

REACTIONS (2)
  - Acute myocardial infarction [Recovered/Resolved]
  - Cardiac arrest [Recovered/Resolved]
